FAERS Safety Report 14396057 (Version 1)
Quarter: 2018Q1

REPORT INFORMATION
  Report Type: Spontaneous
  Country: US (occurrence: US)
  Receive Date: 20180116
  Receipt Date: 20180116
  Transmission Date: 20180509
  Serious: No
  Sender: FDA-Public Use
  Company Number: US-ALLERGAN-1714885US

PATIENT
  Sex: Female

DRUGS (2)
  1. BOTOX COSMETIC [Suspect]
     Active Substance: ONABOTULINUMTOXINA
     Indication: SKIN WRINKLING
     Dosage: UNK
     Route: 030
     Dates: start: 20170310, end: 20170310
  2. BOTOX COSMETIC [Suspect]
     Active Substance: ONABOTULINUMTOXINA
     Indication: SKIN WRINKLING

REACTIONS (10)
  - Adverse event [Unknown]
  - Head discomfort [Not Recovered/Not Resolved]
  - Heart rate irregular [Unknown]
  - Headache [Unknown]
  - Swelling [Unknown]
  - Asthenopia [Not Recovered/Not Resolved]
  - Diplopia [Not Recovered/Not Resolved]
  - Injection site pain [Recovered/Resolved]
  - Vertigo [Not Recovered/Not Resolved]
  - Nausea [Unknown]

NARRATIVE: CASE EVENT DATE: 20170310
